FAERS Safety Report 6107553-6 (Version None)
Quarter: 2009Q1

REPORT INFORMATION
  Report Type: 
  Country: None (occurrence: None)
  Receive Date: 20090309
  Receipt Date: 20090226
  Transmission Date: 20090719
  Serious: Yes (Other)
  Sender: FDA-Public Use
  Company Number: PHHY2009NL06957

PATIENT
  Sex: Male

DRUGS (1)
  1. SANDOSTATIN LAR [Suspect]
     Indication: CARCINOID TUMOUR

REACTIONS (8)
  - CARDIAC DISORDER [None]
  - DIARRHOEA [None]
  - FLUID RETENTION [None]
  - HEART RATE INCREASED [None]
  - HEPATIC PAIN [None]
  - HORMONE LEVEL ABNORMAL [None]
  - NEOPLASM PROGRESSION [None]
  - TRANSURETHRAL BLADDER RESECTION [None]
